FAERS Safety Report 4280576-8 (Version None)
Quarter: 2004Q1

REPORT INFORMATION
  Report Type: 
  Country: None (occurrence: None)
  Receive Date: 20040127
  Receipt Date: 20040114
  Transmission Date: 20041129
  Serious: Yes (Death)
  Sender: FDA-Public Use
  Company Number: 2003119149

PATIENT
  Age: 63 Year
  Sex: Female
  Weight: 85 kg

DRUGS (10)
  1. ZELDOX (CAPSULES) (ZIPRASIDONE) [Suspect]
     Indication: BIPOLAR DISORDER
     Dosage: 160 MG BID ORAL
     Route: 048
     Dates: start: 20030903, end: 20030924
  2. LITHIUM ACETATE (LITHIUM ACETATE) [Suspect]
     Indication: SCHIZOAFFECTIVE DISORDER
     Dosage: ORAL
     Route: 048
     Dates: start: 20030910, end: 20030924
  3. OLANZAPINE [Concomitant]
  4. CARBAMAZEPINE [Concomitant]
  5. ANTIHYPERTENSIVES [Concomitant]
  6. ALL OTHER THERAPEUTIC PRODUCTS [Concomitant]
  7. DIAZEPAM [Concomitant]
  8. CARBAMAZEPINE [Concomitant]
  9. FLUNITRAZEPAM [Concomitant]
  10. BISOPROLOL FUMARATE [Concomitant]

REACTIONS (5)
  - ABDOMINAL PAIN UPPER [None]
  - CARDIAC ARREST [None]
  - LOSS OF CONSCIOUSNESS [None]
  - NAUSEA [None]
  - VOMITING [None]
